FAERS Safety Report 17396691 (Version 1)
Quarter: 2020Q1

REPORT INFORMATION
  Report Type: Spontaneous
  Country: US (occurrence: US)
  Receive Date: 20200210
  Receipt Date: 20200210
  Transmission Date: 20200409
  Serious: Yes (Other)
  Sender: FDA-Public Use
  Company Number: US-PFIZER INC-2020050793

PATIENT

DRUGS (1)
  1. ALPRAZOLAM. [Suspect]
     Active Substance: ALPRAZOLAM
     Dosage: UNK

REACTIONS (9)
  - Asthma [Unknown]
  - Alopecia [Unknown]
  - Neoplasm malignant [Unknown]
  - Parathyroid tumour [Unknown]
  - Malaise [Unknown]
  - Reaction to excipient [Unknown]
  - Dyspnoea [Unknown]
  - Urticaria [Unknown]
  - Anxiety [Unknown]
